FAERS Safety Report 6303778-5 (Version None)
Quarter: 2009Q3

REPORT INFORMATION
  Report Type: 
  Country: None (occurrence: None)
  Receive Date: 20090805
  Receipt Date: 20090727
  Transmission Date: 20100115
  Serious: Yes (Death, Hospitalization, Other)
  Sender: FDA-Public Use
  Company Number: 84511

PATIENT
  Age: 54 Year
  Sex: Male

DRUGS (1)
  1. DIPYRIDAMOLE [Suspect]
     Dosage: 10MG/2ML IV
     Route: 042
     Dates: start: 20090616

REACTIONS (15)
  - ATRIOVENTRICULAR BLOCK COMPLETE [None]
  - CARDIAC ARREST [None]
  - DIALYSIS [None]
  - DIARRHOEA [None]
  - ISCHAEMIC HEPATITIS [None]
  - MALAISE [None]
  - METABOLIC ACIDOSIS [None]
  - MOVEMENT DISORDER [None]
  - PERIPHERAL COLDNESS [None]
  - PRESYNCOPE [None]
  - PROTHROMBIN LEVEL DECREASED [None]
  - REFUSAL OF TREATMENT BY PATIENT [None]
  - RENAL FAILURE [None]
  - RENAL FAILURE ACUTE [None]
  - VOMITING [None]
